FAERS Safety Report 21848246 (Version 1)
Quarter: 2023Q1

REPORT INFORMATION
  Report Type: Spontaneous
  Country: US (occurrence: None)
  Receive Date: 20230110
  Receipt Date: 20230110
  Transmission Date: 20230418
  Serious: Yes (Other)
  Sender: FDA-Public Use
  Company Number: None

PATIENT
  Age: 61 Year
  Sex: Female
  Weight: 64 kg

DRUGS (1)
  1. OCREVUS [Suspect]
     Active Substance: OCRELIZUMAB
     Indication: Multiple sclerosis
     Dates: start: 20190501, end: 20220527

REACTIONS (3)
  - Invasive ductal breast carcinoma [None]
  - Hormone receptor positive breast cancer [None]
  - Hormone receptor positive breast cancer [None]

NARRATIVE: CASE EVENT DATE: 20221116
